FAERS Safety Report 10561571 (Version 2)
Quarter: 2014Q4

REPORT INFORMATION
  Report Type: Report from Study
  Country: US (occurrence: US)
  Receive Date: 20141103
  Receipt Date: 20141125
  Transmission Date: 20150529
  Serious: Yes (Life-Threatening)
  Sender: FDA-Public Use
  Company Number: US-ACTELION-A-US2014-107181

PATIENT
  Age: 71 Year
  Sex: Female

DRUGS (6)
  1. SIMVASTATIN. [Concomitant]
     Active Substance: SIMVASTATIN
  2. LOSARTAN [Concomitant]
     Active Substance: LOSARTAN
  3. ATENOLOL. [Concomitant]
     Active Substance: ATENOLOL
  4. ADCIRCA [Concomitant]
     Active Substance: TADALAFIL
  5. MACITENTAN [Suspect]
     Active Substance: MACITENTAN
     Indication: PULMONARY ARTERIAL HYPERTENSION
     Dosage: 10 MG, 1/2 TABLET DAILY
     Route: 048
     Dates: start: 20140506, end: 201410
  6. FUROSEMIDE. [Concomitant]
     Active Substance: FUROSEMIDE

REACTIONS (4)
  - Swelling face [Unknown]
  - Lip swelling [Unknown]
  - Swollen tongue [Unknown]
  - Urticaria [Unknown]

NARRATIVE: CASE EVENT DATE: 201408
